FAERS Safety Report 5756680-1 (Version None)
Quarter: 2008Q2

REPORT INFORMATION
  Report Type: 
  Country: None (occurrence: None)
  Receive Date: 20080529
  Receipt Date: 20080515
  Transmission Date: 20081010
  Serious: Yes (Other)
  Sender: FDA-Public Use
  Company Number: OPIR20080009

PATIENT
  Age: 66 Year
  Sex: Female
  Weight: 163.2949 kg

DRUGS (9)
  1. OPANA [Suspect]
     Indication: OSTEOARTHRITIS
     Dosage: SEE IMAGE
     Route: 048
     Dates: start: 20080514, end: 20080516
  2. OPANA [Suspect]
     Indication: OSTEOARTHRITIS
     Dosage: SEE IMAGE
     Route: 048
     Dates: start: 20080517, end: 20080518
  3. OPANA [Suspect]
     Indication: OSTEOARTHRITIS
     Dosage: SEE IMAGE
     Route: 048
     Dates: start: 20080518
  4. ROXICODONE [Suspect]
     Indication: BREAKTHROUGH PAIN
     Dosage: 15 MG, 1, PER ORAL
     Route: 048
     Dates: start: 20070101
  5. AVANDIA [Concomitant]
  6. AVAPRO [Concomitant]
  7. TOPROL-XL [Concomitant]
  8. ZOCOR [Concomitant]
  9. ROXICODONE [Concomitant]

REACTIONS (3)
  - DRUG INEFFECTIVE [None]
  - FEELING ABNORMAL [None]
  - INTENTIONAL DRUG MISUSE [None]
